FAERS Safety Report 7051747-2 (Version None)
Quarter: 2010Q4

REPORT INFORMATION
  Report Type: 
  Country: None (occurrence: None)
  Receive Date: 20101019
  Receipt Date: 20101006
  Transmission Date: 20110411
  Serious: Yes (Other)
  Sender: FDA-Public Use
  Company Number: PHHY2010JP67445

PATIENT
  Age: 30 Year
  Sex: Female

DRUGS (2)
  1. TEGRETOL [Suspect]
     Indication: EPILEPSY
     Dosage: 600 MG
  2. TOPIRAMATE [Suspect]
     Indication: EPILEPSY
     Dosage: 100 MG

REACTIONS (3)
  - HALLUCINATION [None]
  - PARANOIA [None]
  - SIMPLE PARTIAL SEIZURES [None]
